FAERS Safety Report 14382006 (Version 1)
Quarter: 2018Q1

REPORT INFORMATION
  Report Type: Spontaneous
  Country: US (occurrence: US)
  Receive Date: 20180112
  Receipt Date: 20180112
  Transmission Date: 20180509
  Serious: Yes (Other)
  Sender: FDA-Public Use
  Company Number: PHHY2017US198179

PATIENT
  Age: 47 Year
  Sex: Female

DRUGS (7)
  1. ALBUTEROL. [Concomitant]
     Active Substance: ALBUTEROL
     Indication: CHRONIC OBSTRUCTIVE PULMONARY DISEASE
     Dosage: UNK UNK, PRN
     Route: 055
  2. ATAZANAVIR. [Concomitant]
     Active Substance: ATAZANAVIR SULFATE
     Indication: HIV TEST POSITIVE
     Dosage: UNK
     Route: 065
  3. EMTRICITABINE [Concomitant]
     Active Substance: EMTRICITABINE
     Indication: HIV TEST POSITIVE
     Dosage: UNK
     Route: 065
  4. TIOTROPIUM BROMIDE [Concomitant]
     Active Substance: TIOTROPIUM BROMIDE
     Indication: CHRONIC OBSTRUCTIVE PULMONARY DISEASE
     Dosage: UNK UNK, QD
     Route: 055
  5. RITONAVIR. [Interacting]
     Active Substance: RITONAVIR
     Indication: HIV TEST POSITIVE
     Dosage: UNK
     Route: 065
  6. BUDESONIDE, FORMOTEROL FUMARATE [Suspect]
     Active Substance: BUDESONIDE\FORMOTEROL FUMARATE DIHYDRATE
     Indication: CHRONIC OBSTRUCTIVE PULMONARY DISEASE
     Dosage: 2 (BUDESONIDE: 160 UG/ACT, FORMOTEROL FUMARATE: 4.5 UG/ACT) DF, Q12H
     Route: 055
  7. RALTEGRAVIR. [Concomitant]
     Active Substance: RALTEGRAVIR
     Indication: HIV TEST POSITIVE
     Dosage: UNK
     Route: 065

REACTIONS (2)
  - Drug interaction [Recovered/Resolved]
  - Cushing^s syndrome [Recovered/Resolved]
